FAERS Safety Report 20900383 (Version 1)
Quarter: 2022Q2

REPORT INFORMATION
  Report Type: Spontaneous
  Country: US (occurrence: US)
  Receive Date: 20220601
  Receipt Date: 20220601
  Transmission Date: 20220721
  Serious: Yes (Hospitalization)
  Sender: FDA-Public Use
  Company Number: US-MYLANLABS-2022M1041082

PATIENT
  Age: 8 Week
  Sex: Male

DRUGS (9)
  1. LEVETIRACETAM [Suspect]
     Active Substance: LEVETIRACETAM
     Indication: Status epilepticus
     Dosage: 40 MILLIGRAM/KILOGRAM, QD (40 MG/KG/DAY DIVIDED INTO TWO TIMES PER DAY)
     Route: 065
  2. LEVETIRACETAM [Suspect]
     Active Substance: LEVETIRACETAM
     Dosage: 30 MILLIGRAM/KILOGRAM
     Route: 065
  3. FOSPHENYTOIN [Suspect]
     Active Substance: FOSPHENYTOIN
     Indication: Status epilepticus
     Dosage: 20 MILLIGRAM/KILOGRAM
     Route: 065
  4. PHENOBARBITAL [Suspect]
     Active Substance: PHENOBARBITAL
     Indication: Status epilepticus
     Dosage: 5 MILLIGRAM/KILOGRAM, QD,5 MG/KG/DAY DIVIDED INTO TWO TIMES PER DAY
     Route: 065
  5. PHENOBARBITAL [Suspect]
     Active Substance: PHENOBARBITAL
     Dosage: 20 MILLIGRAM/KILOGRAM
     Route: 065
  6. MIDAZOLAM [Suspect]
     Active Substance: MIDAZOLAM
     Indication: Status epilepticus
     Dosage: 0.05 MILLIGRAM/KILOGRAM, QH
     Route: 065
  7. MIDAZOLAM [Suspect]
     Active Substance: MIDAZOLAM
     Dosage: 0.15 MILLIGRAM/KILOGRAM, QH,SLOWLY ESCALATED FROM 0.05 MG/KG/ HOUR TO 0.15 MG/KG/HOUR OVER 11 HOURS
     Route: 065
  8. LACOSAMIDE [Suspect]
     Active Substance: LACOSAMIDE
     Indication: Status epilepticus
     Dosage: 20 MILLIGRAM,LOADING DOSE OF 20 MG (APPROXIMATELY 4 MG/KG) WAS GIVEN
     Route: 042
  9. LACOSAMIDE [Suspect]
     Active Substance: LACOSAMIDE
     Dosage: 20 MILLIGRAM,ANOTHER LOAD OF LACOSAMIDE 20 MG WAS GIVEN
     Route: 042

REACTIONS (1)
  - Drug ineffective [Unknown]
